FAERS Safety Report 14279984 (Version 1)
Quarter: 2017Q4

REPORT INFORMATION
  Report Type: Spontaneous
  Country: US (occurrence: US)
  Receive Date: 20171212
  Receipt Date: 20171212
  Transmission Date: 20180321
  Serious: Yes (Death)
  Sender: FDA-Public Use
  Company Number: US-PERRIGO-17US030921

PATIENT
  Age: 41 Year
  Sex: Female

DRUGS (4)
  1. ACETAMINOPHEN. [Suspect]
     Active Substance: ACETAMINOPHEN
     Indication: COMPLETED SUICIDE
     Dosage: UNK
     Route: 048
  2. BISMUTH SUBSALICYLATE 17.467 MG/ML 302 [Suspect]
     Active Substance: BISMUTH SUBSALICYLATE
     Indication: COMPLETED SUICIDE
     Dosage: UNK
     Route: 048
  3. CALCIUM CARBONATE BERRY CHEWABLE 750 MG 489 [Suspect]
     Active Substance: CALCIUM CARBONATE
     Indication: COMPLETED SUICIDE
     Dosage: UNK
     Route: 048
  4. ONDANSETRON [Suspect]
     Active Substance: ONDANSETRON
     Indication: COMPLETED SUICIDE
     Dosage: UNK
     Route: 048

REACTIONS (1)
  - Death [Fatal]
